FAERS Safety Report 8797021 (Version 2)
Quarter: 2012Q4

REPORT INFORMATION
  Report Type: 
  Country: US (occurrence: US)
  Receive Date: 20120919
  Receipt Date: 20121011
  Transmission Date: 20130627
  Serious: Yes (Life-Threatening, Hospitalization, Disabling, Other)
  Sender: FDA-Public Use
  Company Number: US-GLAXOSMITHKLINE-A0993300A

PATIENT
  Age: 63 Year
  Sex: Female
  Weight: 70 kg

DRUGS (6)
  1. PROMACTA [Suspect]
     Indication: IDIOPATHIC THROMBOCYTOPENIC PURPURA
     Dosage: 75MG Per day
     Route: 048
     Dates: start: 20120424, end: 20120831
  2. IMMUNE GLOBULIN HUMAN [Suspect]
     Route: 042
  3. METHYLPREDNISONE [Suspect]
     Indication: PRODUCT USED FOR UNKNOWN INDICATION
     Route: 048
  4. DECADRON [Suspect]
     Indication: PRODUCT USED FOR UNKNOWN INDICATION
     Route: 065
  5. BLOOD TRANSFUSION [Concomitant]
  6. CONCURRENT MEDICATIONS [Concomitant]

REACTIONS (9)
  - Myelofibrosis [Not Recovered/Not Resolved]
  - Anaemia [Not Recovered/Not Resolved]
  - Gastrointestinal haemorrhage [Unknown]
  - White blood cell count increased [Not Recovered/Not Resolved]
  - Drug ineffective [Not Recovered/Not Resolved]
  - Thrombocytopenia [Unknown]
  - Nucleated red cells [Unknown]
  - Biopsy bone marrow [Unknown]
  - Reticulocyte count increased [Unknown]
